APPROVED DRUG PRODUCT: BRIVIACT
Active Ingredient: BRIVARACETAM
Strength: 10MG
Dosage Form/Route: TABLET;ORAL
Application: N205836 | Product #001 | TE Code: AB
Applicant: UCB INC
Approved: May 12, 2016 | RLD: Yes | RS: No | Type: RX

PATENTS:
Patent 6911461 | Expires: Feb 21, 2026
Patent 10729653 | Expires: Apr 9, 2030